FAERS Safety Report 12784346 (Version 1)
Quarter: 2016Q3

REPORT INFORMATION
  Report Type: Spontaneous
  Country: GB (occurrence: GB)
  Receive Date: 20160927
  Receipt Date: 20160927
  Transmission Date: 20161109
  Serious: Yes (Other)
  Sender: FDA-Public Use
  Company Number: GB-BEH-2009020033

PATIENT
  Age: 12 Year
  Sex: Male
  Weight: 55 kg

DRUGS (1)
  1. SANDOGLOBULIN NF [Suspect]
     Active Substance: HUMAN IMMUNOGLOBULIN G
     Indication: PRIMARY IMMUNODEFICIENCY SYNDROME
     Route: 042

REACTIONS (5)
  - Rash [Recovered/Resolved]
  - Swelling face [Recovered/Resolved]
  - Anaphylactic reaction [Recovered/Resolved]
  - Lip swelling [Recovered/Resolved]
  - Wheezing [Recovered/Resolved]
